FAERS Safety Report 6092750-9 (Version None)
Quarter: 2009Q1

REPORT INFORMATION
  Report Type: 
  Country: None (occurrence: None)
  Receive Date: 20090225
  Receipt Date: 20090212
  Transmission Date: 20090719
  Serious: Yes (Life-Threatening, Hospitalization)
  Sender: FDA-Public Use
  Company Number: DE-JNJFOC-20081105648

PATIENT
  Age: 50 Year
  Sex: Male

DRUGS (9)
  1. TAVANIC [Suspect]
     Indication: FEBRILE INFECTION
     Route: 048
  2. TAVANIC [Suspect]
     Indication: INFLUENZA LIKE ILLNESS
     Route: 048
  3. TAVANIC [Suspect]
     Indication: RASH
     Route: 048
  4. TAVANIC [Suspect]
     Route: 042
  5. TAVANIC [Suspect]
     Route: 042
  6. TAVANIC [Suspect]
     Route: 042
  7. NOVALGIN [Concomitant]
     Indication: RASH
     Route: 065
  8. NOVALGIN [Concomitant]
     Indication: INFLUENZA LIKE ILLNESS
     Route: 065
  9. NOVALGIN [Concomitant]
     Indication: FEBRILE INFECTION
     Route: 065

REACTIONS (11)
  - BLOOD IMMUNOGLOBULIN G INCREASED [None]
  - COAGULATION FACTOR DECREASED [None]
  - DRUG HYPERSENSITIVITY [None]
  - GAMMA-GLUTAMYLTRANSFERASE INCREASED [None]
  - GENERAL PHYSICAL HEALTH DETERIORATION [None]
  - HEPARIN-INDUCED THROMBOCYTOPENIA [None]
  - MULTI-ORGAN FAILURE [None]
  - RASH GENERALISED [None]
  - RENAL FAILURE ACUTE [None]
  - T-CELL LYMPHOMA [None]
  - TRANSAMINASES INCREASED [None]
